FAERS Safety Report 9757478 (Version 1)
Quarter: 2013Q4

REPORT INFORMATION
  Report Type: Spontaneous
  Country: US (occurrence: US)
  Receive Date: 20131215
  Receipt Date: 20131215
  Transmission Date: 20140711
  Serious: No
  Sender: FDA-Public Use
  Company Number: US-B.I. PHARMACEUTICALS,INC./RIDGEFIELD-2013-BI-40179BP

PATIENT
  Age: 81 Year
  Sex: Male

DRUGS (1)
  1. TWYNSTA [Suspect]
     Indication: HYPERTENSION
     Dosage: DOSE PER APPLICATION: 80MG / 10MG; DAILY DOSE: 80MG/10MG
     Route: 048
     Dates: start: 2008

REACTIONS (2)
  - Carpal tunnel syndrome [Not Recovered/Not Resolved]
  - Arthritis [Not Recovered/Not Resolved]
